FAERS Safety Report 10578319 (Version 1)
Quarter: 2014Q4

REPORT INFORMATION
  Report Type: Spontaneous
  Country: US (occurrence: None)
  Receive Date: 20141111
  Receipt Date: 20141111
  Transmission Date: 20150529
  Serious: Yes (Disabling)
  Sender: FDA-Public Use
  Company Number: None

PATIENT
  Age: 26 Year
  Sex: Female
  Weight: 46 kg

DRUGS (1)
  1. ISOTROIN-10 [Suspect]
     Active Substance: ISOTRETINOIN
     Indication: ACNE
     Dosage: 1 PILL PER DAY
     Route: 048
     Dates: start: 201103, end: 201107

REACTIONS (16)
  - Depression [None]
  - Dandruff [None]
  - Female orgasmic disorder [None]
  - Dry skin [None]
  - Alopecia [None]
  - Mental disorder [None]
  - Sexual dysfunction [None]
  - Vulvovaginal dryness [None]
  - Tinnitus [None]
  - Suicidal behaviour [None]
  - Anhedonia [None]
  - Fatigue [None]
  - Dry eye [None]
  - Lip dry [None]
  - Libido decreased [None]
  - Dyspareunia [None]

NARRATIVE: CASE EVENT DATE: 20110731
